FAERS Safety Report 13005962 (Version 1)
Quarter: 2016Q4

REPORT INFORMATION
  Report Type: Spontaneous
  Country: US (occurrence: US)
  Receive Date: 20161206
  Receipt Date: 20161206
  Transmission Date: 20170207
  Serious: Yes (Hospitalization)
  Sender: FDA-Public Use
  Company Number: None

PATIENT
  Age: 65 Year
  Sex: Female
  Weight: 91 kg

DRUGS (2)
  1. MIDAZOLAM [Suspect]
     Active Substance: MIDAZOLAM\MIDAZOLAM HYDROCHLORIDE
     Indication: NEPHROSTOMY
     Route: 042
     Dates: start: 20160609
  2. FENTANYL. [Suspect]
     Active Substance: FENTANYL
     Indication: NEPHROSTOMY
     Dosage: ?          OTHER FREQUENCY:SEE TIMELINE;?
     Route: 042
     Dates: start: 20160609

REACTIONS (2)
  - Hypoxia [None]
  - Hypertension [None]

NARRATIVE: CASE EVENT DATE: 20160609
